FAERS Safety Report 8495782-6 (Version None)
Quarter: 2012Q3

REPORT INFORMATION
  Report Type: 
  Country: None (occurrence: None)
  Receive Date: 20120709
  Receipt Date: 20120628
  Transmission Date: 20120928
  Serious: Yes (Hospitalization, Other)
  Sender: FDA-Public Use
  Company Number: US-ASTRAZENECA-2011SE30877

PATIENT
  Age: 62 Year
  Sex: Female

DRUGS (6)
  1. SEROQUEL [Suspect]
     Route: 048
  2. SEROQUEL [Suspect]
     Indication: DEPRESSION
     Dosage: TOTAL DAILY DOSE - 100 MG, FREQUENCY - TWO TIMES A DAY
     Route: 048
     Dates: start: 20060101
  3. SEROQUEL [Suspect]
     Indication: OBSESSIVE-COMPULSIVE DISORDER
     Dosage: TOTAL DAILY DOSE - 100 MG, FREQUENCY - TWO TIMES A DAY
     Route: 048
     Dates: start: 20060101
  4. SEROQUEL [Suspect]
     Dosage: 100 MG AM AND 200 MG PM
     Route: 048
  5. SEROQUEL [Suspect]
     Route: 048
  6. SEROQUEL [Suspect]
     Dosage: 100 MG AM AND 200 MG PM
     Route: 048

REACTIONS (10)
  - ABASIA [None]
  - MALAISE [None]
  - LOWER LIMB FRACTURE [None]
  - WEIGHT BEARING DIFFICULTY [None]
  - SPEECH DISORDER [None]
  - FALL [None]
  - DYSPNOEA [None]
  - OVERWEIGHT [None]
  - TEMPERATURE INTOLERANCE [None]
  - TIC [None]
